FAERS Safety Report 16168825 (Version 1)
Quarter: 2019Q2

REPORT INFORMATION
  Report Type: Report from Study
  Country: US (occurrence: US)
  Receive Date: 20190408
  Receipt Date: 20190408
  Transmission Date: 20190711
  Serious: Yes (Other)
  Sender: FDA-Public Use
  Company Number: US-AMGEN-USASL2019052388

PATIENT
  Age: 74 Year
  Sex: Male

DRUGS (2)
  1. INSULIN [Concomitant]
     Active Substance: INSULIN NOS
     Indication: BLOOD GLUCOSE INCREASED
  2. REPATHA [Suspect]
     Active Substance: EVOLOCUMAB
     Indication: PRODUCT USED FOR UNKNOWN INDICATION
     Dosage: UNK UNK, Q2WK
     Route: 065

REACTIONS (10)
  - Swollen tongue [Unknown]
  - Fatigue [Unknown]
  - Swelling face [Unknown]
  - Blood glucose increased [Unknown]
  - Constipation [Unknown]
  - Musculoskeletal chest pain [Unknown]
  - Body temperature decreased [Unknown]
  - Cough [Unknown]
  - Peripheral swelling [Unknown]
  - Pruritus [Unknown]
